FAERS Safety Report 7850571-8 (Version None)
Quarter: 2011Q4

REPORT INFORMATION
  Report Type: 
  Country: None (occurrence: None)
  Receive Date: 20111024
  Receipt Date: 20111014
  Transmission Date: 20120403
  Serious: Yes (Other)
  Sender: FDA-Public Use
  Company Number: 1077236

PATIENT
  Age: 58 Year
  Sex: Female
  Weight: 60 kg

DRUGS (2)
  1. DOCETAXEL [Suspect]
     Indication: SARCOMA
     Dosage: EVERY 15 DAYS,   ,
  2. DOCETAXEL [Concomitant]

REACTIONS (3)
  - DERMATITIS EXFOLIATIVE [None]
  - FACE OEDEMA [None]
  - PALMAR-PLANTAR ERYTHRODYSAESTHESIA SYNDROME [None]
